FAERS Safety Report 6175227-1 (Version None)
Quarter: 2009Q2

REPORT INFORMATION
  Report Type: 
  Country: None (occurrence: None)
  Receive Date: 20090430
  Receipt Date: 20090127
  Transmission Date: 20091009
  Serious: No
  Sender: FDA-Public Use
  Company Number: US-ASTRAZENECA-2009UW02525

PATIENT
  Sex: Male

DRUGS (1)
  1. NEXIUM [Suspect]
     Dosage: UNKNOWN
     Route: 048
     Dates: start: 20080801, end: 20090101

REACTIONS (5)
  - ARTHRALGIA [None]
  - FALL [None]
  - JOINT SPRAIN [None]
  - MUSCULOSKELETAL DISCOMFORT [None]
  - THERMAL BURN [None]
